FAERS Safety Report 7300685-6 (Version None)
Quarter: 2011Q1

REPORT INFORMATION
  Report Type: 
  Country: None (occurrence: None)
  Receive Date: 20110207
  Receipt Date: 20110126
  Transmission Date: 20110831
  Serious: Yes (Other)
  Sender: FDA-Public Use
  Company Number: 1000018616

PATIENT
  Age: 51 Year
  Sex: Male
  Weight: 70 kg

DRUGS (10)
  1. IBUPROFEN [Concomitant]
  2. NEDOCROMIL (NEDOCROMIL) (NEDOCROMIL) [Concomitant]
  3. CITALOPRAM HYDROBROMIDE [Suspect]
     Indication: ANXIETY
     Dosage: 10 MG (10 MG, 1 IN 1 D),ORAL; 20 MG (20 MG, 1 IN 1 D),ORAL; 30 MG (30 MG, 1 IN 1 D),ORAL
     Route: 048
     Dates: start: 20101102
  4. CITALOPRAM HYDROBROMIDE [Suspect]
     Indication: ANXIETY
     Dosage: 10 MG (10 MG, 1 IN 1 D),ORAL; 20 MG (20 MG, 1 IN 1 D),ORAL; 30 MG (30 MG, 1 IN 1 D),ORAL
     Route: 048
     Dates: start: 20090921, end: 20101004
  5. CITALOPRAM HYDROBROMIDE [Suspect]
     Indication: ANXIETY
     Dosage: 10 MG (10 MG, 1 IN 1 D),ORAL; 20 MG (20 MG, 1 IN 1 D),ORAL; 30 MG (30 MG, 1 IN 1 D),ORAL
     Route: 048
     Dates: start: 20101005, end: 20101101
  6. FOSTER (BECLOMETASONE DIPROPINOATE, FORMOTEROL FUMARATE, FORMOTEROL FU [Concomitant]
  7. VIGRAN (MULTIVITAMIN) (MULTIVITAMIN) [Concomitant]
  8. MOMETASONE (MOMETASONE) (MOMETASONE) [Concomitant]
  9. PARACETAMOL (PARACETAMOL) (PARACETAMOL) [Concomitant]
  10. SERETIDE (FLUTICASONE PROPIONATE MCRONIZDED, SALMETEROL XINAFOATE MICR [Concomitant]

REACTIONS (1)
  - PANCREATITIS [None]
